FAERS Safety Report 15021059 (Version 5)
Quarter: 2022Q4

REPORT INFORMATION
  Report Type: Spontaneous
  Country: US (occurrence: US)
  Receive Date: 20180618
  Receipt Date: 20221216
  Transmission Date: 20230112
  Serious: Yes (Death, Other)
  Sender: FDA-Public Use
  Company Number: US-PFIZER INC-2017193123

PATIENT
  Age: 75 Year
  Sex: Male

DRUGS (1)
  1. XELJANZ [Suspect]
     Active Substance: TOFACITINIB CITRATE
     Indication: Rheumatoid arthritis
     Dosage: 5 MG, 2X/DAY
     Dates: start: 201702

REACTIONS (4)
  - Death [Fatal]
  - Sinus disorder [Not Recovered/Not Resolved]
  - Arthropod bite [Unknown]
  - Infected bite [Unknown]

NARRATIVE: CASE EVENT DATE: 20180101
